FAERS Safety Report 25986306 (Version 1)
Quarter: 2025Q4

REPORT INFORMATION
  Report Type: Spontaneous
  Country: EU (occurrence: EU)
  Receive Date: 20251031
  Receipt Date: 20251031
  Transmission Date: 20260118
  Serious: Yes (Other)
  Sender: MERCK SHARP & DOHME LLC
  Company Number: EU-009507513-2343180

PATIENT

DRUGS (2)
  1. POSACONAZOLE [Interacting]
     Active Substance: POSACONAZOLE
  2. APIXABAN [Interacting]
     Active Substance: APIXABAN
     Indication: Anticoagulant therapy

REACTIONS (1)
  - Drug interaction [Unknown]
